FAERS Safety Report 8224196-9 (Version None)
Quarter: 2012Q1

REPORT INFORMATION
  Report Type: 
  Country: None (occurrence: None)
  Receive Date: 20120321
  Receipt Date: 20120313
  Transmission Date: 20120608
  Serious: Yes (Other)
  Sender: FDA-Public Use
  Company Number: DE-UCBSA-053609

PATIENT
  Sex: Female

DRUGS (3)
  1. TRILEPTAL [Suspect]
     Indication: EPILEPSY
     Dosage: TOTAL DAILY DOSE : 2400 MG
     Route: 064
  2. KEPPRA [Suspect]
     Indication: EPILEPSY
     Dosage: TOTAL DAILY DOSE : 2000 MG
     Route: 064
  3. TOPAMAX [Suspect]
     Indication: EPILEPSY
     Dosage: TOTAL DAILY DOSE : 100 MG
     Route: 064

REACTIONS (2)
  - FOETAL EXPOSURE DURING PREGNANCY [None]
  - SMALL FOR DATES BABY [None]
